FAERS Safety Report 24052413 (Version 3)
Quarter: 2024Q3

REPORT INFORMATION
  Report Type: Report from Study
  Country: US (occurrence: US)
  Receive Date: 20240704
  Receipt Date: 20240808
  Transmission Date: 20241016
  Serious: Yes (Other)
  Sender: ABBVIE
  Company Number: US-ABBVIE-5823442

PATIENT
  Age: 74 Year
  Sex: Male
  Weight: 72.6 kg

DRUGS (4)
  1. IMBRUVICA [Suspect]
     Active Substance: IBRUTINIB
     Indication: Waldenstrom^s macroglobulinaemia
     Dosage: FIRST ADMIN DATE 2024?FORM STRENGTH: 420 MILLIGRAM
     Route: 048
  2. IMBRUVICA [Suspect]
     Active Substance: IBRUTINIB
     Indication: Waldenstrom^s macroglobulinaemia
     Dosage: LAST ADMIN DATE 2024?FORM STRENGTH: 420 MILLIGRAM
     Route: 048
     Dates: start: 202405
  3. FERROUS SULFATE [Suspect]
     Active Substance: FERROUS SULFATE
     Indication: Product used for unknown indication
     Route: 065
     Dates: start: 202405, end: 202406
  4. IRON [Concomitant]
     Active Substance: IRON
     Indication: Product used for unknown indication
     Dosage: GUMMIES?FORM STRENGTH: 9 MILLIGRAM
     Dates: start: 202406

REACTIONS (6)
  - Haemoglobin decreased [Unknown]
  - Constipation [Recovering/Resolving]
  - Flatulence [Not Recovered/Not Resolved]
  - Dry skin [Unknown]
  - Rash [Recovering/Resolving]
  - Skin disorder [Not Recovered/Not Resolved]

NARRATIVE: CASE EVENT DATE: 20240501
